FAERS Safety Report 23729004 (Version 1)
Quarter: 2024Q2

REPORT INFORMATION
  Report Type: Spontaneous
  Country: CH (occurrence: None)
  Receive Date: 20240410
  Receipt Date: 20240410
  Transmission Date: 20240715
  Serious: Yes (Congenital Anomaly, Other)
  Sender: FDA-Public Use
  Company Number: 2024A084696

PATIENT
  Age: 8 Month
  Sex: Male
  Weight: 3.3 kg

DRUGS (2)
  1. SEROQUEL [Suspect]
     Active Substance: QUETIAPINE FUMARATE
     Indication: Bipolar disorder
     Route: 064
  2. LITHIUM SULFATE [Suspect]
     Active Substance: LITHIUM SULFATE
     Indication: Bipolar disorder
     Dosage: 330 MG IN THE MORNING AND 660 MG IN THE EVENING
     Route: 064
     Dates: start: 20230412

REACTIONS (2)
  - Exposure during pregnancy [Recovered/Resolved]
  - Congenital central nervous system anomaly [Unknown]

NARRATIVE: CASE EVENT DATE: 20230322
